FAERS Safety Report 18695867 (Version 2)
Quarter: 2021Q1

REPORT INFORMATION
  Report Type: Spontaneous
  Country: DE (occurrence: DE)
  Receive Date: 20210104
  Receipt Date: 20210120
  Transmission Date: 20210419
  Serious: Yes (Other)
  Sender: FDA-Public Use
  Company Number: DE-BAYER-2020-287235

PATIENT
  Age: 38 Year
  Sex: Female

DRUGS (2)
  1. L?THYROXIN [LEVOTHYROXINE] [Concomitant]
     Active Substance: LEVOTHYROXINE SODIUM
  2. MIRENA [Suspect]
     Active Substance: LEVONORGESTREL
     Dosage: 20 ?G PER DAY CONTINUOUSLY
     Route: 015
     Dates: start: 2015, end: 2017

REACTIONS (18)
  - Depressed mood [None]
  - Pyrexia [Recovered/Resolved]
  - Migraine [Recovered/Resolved]
  - Panic attack [None]
  - Dizziness [Recovered/Resolved]
  - Loss of libido [Not Recovered/Not Resolved]
  - Withdrawal syndrome [Recovered/Resolved]
  - Autoimmune thyroiditis [Recovered/Resolved]
  - Feeling abnormal [Recovered/Resolved]
  - Amenorrhoea [Recovered/Resolved]
  - Irritability [Recovered/Resolved]
  - Restlessness [Recovered/Resolved]
  - Weight increased [Recovered/Resolved]
  - Disturbance in attention [Recovered/Resolved]
  - Acne [Recovered/Resolved]
  - Aggression [Recovered/Resolved]
  - Groin pain [Recovered/Resolved]
  - Influenza [Recovered/Resolved]

NARRATIVE: CASE EVENT DATE: 2017
